FAERS Safety Report 8444882-5 (Version None)
Quarter: 2012Q2

REPORT INFORMATION
  Report Type: 
  Country: None (occurrence: None)
  Receive Date: 20120618
  Receipt Date: 20120611
  Transmission Date: 20120825
  Serious: Yes (Death)
  Sender: FDA-Public Use
  Company Number: US-CELGENEUS-163-21880-12060526

PATIENT
  Sex: Female

DRUGS (7)
  1. CURCUMIN [Concomitant]
     Route: 065
  2. TIAZAC [Concomitant]
     Route: 065
  3. TURMERIC [Concomitant]
     Route: 065
  4. TRAMADOL HCL [Concomitant]
     Route: 065
  5. REVLIMID [Suspect]
     Dosage: 5 MILLIGRAM
     Route: 048
     Dates: start: 20090121
  6. CITALOPRAM HYDROBROMIDE [Concomitant]
     Route: 065
  7. HYDROBROMIDE [Concomitant]
     Route: 065

REACTIONS (1)
  - DEATH [None]
